FAERS Safety Report 5370960-3 (Version None)
Quarter: 2007Q2

REPORT INFORMATION
  Report Type: 
  Country: None (occurrence: None)
  Receive Date: 20070626
  Receipt Date: 20070619
  Transmission Date: 20071010
  Serious: Yes (Hospitalization)
  Sender: FDA-Public Use
  Company Number: JP-BOEHRINGER INGELHEIM PHARMACEUTICALS, INC.-2006-BP-14004NB

PATIENT
  Sex: Female
  Weight: 42 kg

DRUGS (13)
  1. BI-SIFROL TABLETS [Suspect]
     Indication: PARKINSON'S DISEASE
     Route: 048
     Dates: start: 20060131
  2. FUROSEMIDE [Concomitant]
     Indication: HEPATIC CIRRHOSIS
     Route: 048
     Dates: start: 20050802
  3. KANAMYCIN [Concomitant]
     Indication: HEPATIC CIRRHOSIS
     Route: 048
     Dates: start: 20051002
  4. LACTULOSE [Concomitant]
     Indication: HEPATIC CIRRHOSIS
     Route: 048
     Dates: start: 20051027
  5. INSULIN [Concomitant]
     Indication: DIABETES MELLITUS
     Route: 058
     Dates: start: 20051101
  6. TERFIS [Concomitant]
     Indication: OEDEMA PERIPHERAL
     Route: 065
     Dates: start: 20060516, end: 20060518
  7. LIVACT [Concomitant]
     Indication: OEDEMA PERIPHERAL
     Route: 065
     Dates: start: 20051222, end: 20060201
  8. MENESIT [Concomitant]
     Indication: PARKINSON'S DISEASE
     Route: 048
     Dates: start: 20060104
  9. RESLIN [Concomitant]
     Indication: DEPRESSION
     Route: 048
     Dates: start: 20051219
  10. NITRAZEPAM [Concomitant]
     Indication: INSOMNIA
     Route: 048
     Dates: start: 20051003
  11. TRIAZOLAM [Concomitant]
     Indication: INSOMNIA
     Route: 048
     Dates: start: 20050905
  12. DEPROMEL (FLUVOXAMINE MALEATE) [Concomitant]
     Indication: DEPRESSION
     Route: 048
     Dates: start: 20050905
  13. SPIRONOLACTONE [Concomitant]
     Indication: HEPATIC CIRRHOSIS
     Route: 048
     Dates: start: 20050825

REACTIONS (2)
  - COMA HEPATIC [None]
  - CONSTIPATION [None]
